FAERS Safety Report 20817506 (Version 2)
Quarter: 2022Q2

REPORT INFORMATION
  Report Type: Spontaneous
  Country: US (occurrence: US)
  Receive Date: 20220512
  Receipt Date: 20220524
  Transmission Date: 20220721
  Serious: Yes (Other)
  Sender: FDA-Public Use
  Company Number: US-Accord-263241

PATIENT
  Age: 31 Year
  Sex: Female

DRUGS (2)
  1. CISPLATIN [Suspect]
     Active Substance: CISPLATIN
     Indication: Neuroendocrine breast tumour
     Dosage: CUMULATIVE DOSE: 1 CYCLICAL
     Dates: start: 20190313, end: 2019
  2. ETOPOSIDE [Suspect]
     Active Substance: ETOPOSIDE
     Indication: Neuroendocrine breast tumour
     Dosage: CUMULATIVE DOSE: 1 CYCLICAL
     Dates: start: 20190313, end: 2019

REACTIONS (3)
  - Diarrhoea [Unknown]
  - Off label use [Unknown]
  - Breast cellulitis [Unknown]

NARRATIVE: CASE EVENT DATE: 20190101
